FAERS Safety Report 4964276-4 (Version None)
Quarter: 2006Q1

REPORT INFORMATION
  Report Type: 
  Country: None (occurrence: None)
  Receive Date: 20060331
  Receipt Date: 20060315
  Transmission Date: 20060701
  Serious: Yes (Hospitalization)
  Sender: FDA-Public Use
  Company Number: USA021224901

PATIENT
  Age: 82 Year
  Sex: Female
  Weight: 55.9 kg

DRUGS (13)
  1. FORTEO [Suspect]
     Indication: OSTEOPOROSIS
     Dosage: 20 UG, DAILY (1/D), SUBCUTANEOUS
     Route: 058
     Dates: start: 20021211
  2. DARVOCET-N (PROPOXYPHENE NAPSYLATE UNKNOWN FORMULATION) UNKNOWN [Suspect]
     Indication: PAIN
     Dosage: 100 MG, AS NEEDED, ORAL
     Route: 048
  3. COUMADIN [Concomitant]
  4. FOSAMAX [Concomitant]
  5. HYZAAR [Concomitant]
  6. EXTRA STRENGTH TYLENOL [Concomitant]
  7. XALATAN [Concomitant]
  8. PROVENTIL [Concomitant]
  9. SEREVENT [Concomitant]
  10. PULMICORT [Concomitant]
  11. OXYBUTYNIN CHLORIDE [Concomitant]
  12. LEXAPRO [Concomitant]
  13. FORTEO PEN, 250MCG/ML (3ML) (FORTEO PEN 250MCG/ML (3ML)) PEN, DISPOSAB [Concomitant]

REACTIONS (20)
  - BLOOD PRESSURE INCREASED [None]
  - DRUG INTERACTION [None]
  - DYSPNOEA [None]
  - ERYTHEMA [None]
  - FALL [None]
  - HAEMORRHAGE [None]
  - HIP FRACTURE [None]
  - INJECTION SITE BRUISING [None]
  - INJECTION SITE DISCOLOURATION [None]
  - INJECTION SITE ERYTHEMA [None]
  - INJECTION SITE HAEMORRHAGE [None]
  - LIMB INJURY [None]
  - PAIN IN EXTREMITY [None]
  - PHARMACEUTICAL PRODUCT COMPLAINT [None]
  - PROTHROMBIN TIME SHORTENED [None]
  - PRURITUS [None]
  - PRURITUS GENERALISED [None]
  - RASH MACULAR [None]
  - SKIN DISCOLOURATION [None]
  - SKIN LACERATION [None]
